FAERS Safety Report 4543873-4 (Version None)
Quarter: 2005Q1

REPORT INFORMATION
  Report Type: 
  Country: None (occurrence: None)
  Receive Date: 20050104
  Receipt Date: 20041227
  Transmission Date: 20050727
  Serious: Yes (Other)
  Sender: FDA-Public Use
  Company Number: 200414929FR

PATIENT
  Age: 35 Year
  Sex: Female

DRUGS (1)
  1. FLAGYL [Suspect]
     Indication: LIVER ABSCESS
     Route: 048

REACTIONS (1)
  - PERIPHERAL SENSORY NEUROPATHY [None]
